FAERS Safety Report 7129104-X (Version None)
Quarter: 2010Q4

REPORT INFORMATION
  Report Type: 
  Country: None (occurrence: None)
  Receive Date: 20101116
  Receipt Date: 20101101
  Transmission Date: 20110411
  Serious: Yes (Other)
  Sender: FDA-Public Use
  Company Number: M1005059

PATIENT
  Age: 5 Month
  Sex: Female

DRUGS (1)
  1. DIVIGEL (ESTRADIOL GEL) 0.1% 0.5 MG (ESTRADIOL) [Suspect]
     Indication: ACCIDENTAL EXPOSURE
     Dosage: TOPICAL
     Route: 061

REACTIONS (2)
  - ACCIDENTAL EXPOSURE [None]
  - CONVULSION [None]
